FAERS Safety Report 19529541 (Version 1)
Quarter: 2021Q3

REPORT INFORMATION
  Report Type: Spontaneous
  Country: JP (occurrence: JP)
  Receive Date: 20210713
  Receipt Date: 20210713
  Transmission Date: 20211014
  Serious: Yes (Other)
  Sender: FDA-Public Use
  Company Number: JP-FERRINGPH-2021FE04443

PATIENT
  Sex: Male

DRUGS (1)
  1. GONAX [Suspect]
     Active Substance: DEGARELIX
     Indication: PROSTATE CANCER
     Dosage: UNK, EVERY 3RD MONTH
     Route: 058

REACTIONS (10)
  - Injection site swelling [Recovered/Resolved]
  - Nausea [Unknown]
  - Injection site induration [Not Recovered/Not Resolved]
  - Incorrect route of product administration [Unknown]
  - Pain [Unknown]
  - Injection site pain [Recovered/Resolved]
  - Injection site swelling [Not Recovered/Not Resolved]
  - Pyrexia [Unknown]
  - Hepatic cirrhosis [Unknown]
  - Pain [Unknown]

NARRATIVE: CASE EVENT DATE: 202007
